FAERS Safety Report 25229121 (Version 1)
Quarter: 2025Q2

REPORT INFORMATION
  Report Type: Report from Study
  Country: CO (occurrence: CO)
  Receive Date: 20250423
  Receipt Date: 20250423
  Transmission Date: 20250717
  Serious: Yes (Hospitalization, Congenital Anomaly, Other)
  Sender: UCB
  Company Number: CO-UCBSA-2024044939

PATIENT
  Sex: Male
  Weight: 10 kg

DRUGS (3)
  1. CERTOLIZUMAB PEGOL [Suspect]
     Active Substance: CERTOLIZUMAB PEGOL
     Indication: Rheumatoid arthritis
     Dosage: 400 MILLIGRAM, EV 30 DAYS, SOLUTION FOR INJECTION
     Route: 064
     Dates: start: 2023, end: 20240408
  2. CERTOLIZUMAB PEGOL [Suspect]
     Active Substance: CERTOLIZUMAB PEGOL
     Dosage: 400 MILLIGRAM, EV 30 DAYS, SOLUTION FOR INJECTION
     Route: 063
     Dates: start: 20240409, end: 20240726
  3. SULFASALAZINE [Concomitant]
     Active Substance: SULFASALAZINE
     Indication: Product used for unknown indication
     Route: 064

REACTIONS (4)
  - Cardiac ventricular disorder [Not Recovered/Not Resolved]
  - Bronchiolitis [Unknown]
  - Maternal exposure during pregnancy [Unknown]
  - Exposure via breast milk [Unknown]

NARRATIVE: CASE EVENT DATE: 20230101
